FAERS Safety Report 10018454 (Version 1)
Quarter: 2014Q1

REPORT INFORMATION
  Report Type: Spontaneous
  Country: US (occurrence: None)
  Receive Date: 20140314
  Receipt Date: 20140314
  Transmission Date: 20141002
  Serious: Yes (Disabling)
  Sender: FDA-Public Use
  Company Number: None

PATIENT
  Age: 52 Year
  Sex: Male
  Weight: 88.45 kg

DRUGS (1)
  1. BOTOX 200 ALLERGAN [Suspect]
     Indication: POST-TRAUMATIC HEADACHE
     Dates: start: 20131205, end: 20131205

REACTIONS (4)
  - Skin wrinkling [None]
  - Eyelid ptosis [None]
  - Skin wrinkling [None]
  - Unevaluable event [None]
